FAERS Safety Report 7581277-0 (Version None)
Quarter: 2011Q2

REPORT INFORMATION
  Report Type: 
  Country: None (occurrence: None)
  Receive Date: 20110629
  Receipt Date: 20110627
  Transmission Date: 20111010
  Serious: Yes (Life-Threatening, Hospitalization)
  Sender: FDA-Public Use
  Company Number: DE-ROCHE-768505

PATIENT
  Sex: Male
  Weight: 97.5 kg

DRUGS (12)
  1. TOCILIZUMAB [Suspect]
     Indication: RHEUMATOID ARTHRITIS
     Route: 042
     Dates: start: 20101103, end: 20101103
  2. TOCILIZUMAB [Suspect]
     Dosage: ALSO GIVEN ON 07 JAN 2011 AND 11 FEB 2011
     Route: 042
     Dates: start: 20101201
  3. PREDNISOLONE [Concomitant]
     Indication: RHEUMATOID ARTHRITIS
  4. DICLAC [Suspect]
     Indication: RHEUMATOID ARTHRITIS
     Route: 065
  5. CALCIUM NOS [Concomitant]
  6. PANTOPRAZOLE [Concomitant]
  7. VITAMIN D [Concomitant]
  8. ARAVA [Concomitant]
     Indication: RHEUMATOID ARTHRITIS
     Dates: end: 20101201
  9. AMLODIPINE [Concomitant]
  10. FOLIC ACID [Concomitant]
  11. METHOTREXATE [Concomitant]
     Indication: RHEUMATOID ARTHRITIS
     Route: 058
     Dates: end: 20110119
  12. METAMIZOL [Concomitant]

REACTIONS (2)
  - RENAL FAILURE ACUTE [None]
  - GASTROENTERITIS SALMONELLA [None]
